FAERS Safety Report 6152347-9 (Version None)
Quarter: 2009Q2

REPORT INFORMATION
  Report Type: 
  Country: None (occurrence: None)
  Receive Date: 20090413
  Receipt Date: 20090402
  Transmission Date: 20091009
  Serious: No
  Sender: FDA-Public Use
  Company Number: US-JNJFOC-20090401530

PATIENT
  Sex: Female
  Weight: 61.24 kg

DRUGS (8)
  1. DURAGESIC-100 [Suspect]
     Indication: NEURALGIA
     Route: 062
  2. LORTAB [Concomitant]
     Indication: PAIN
     Dosage: 10-500, 4 TIMES A DAY AND AS NEEDED
     Route: 048
  3. CELEBREX [Concomitant]
     Indication: ARTHRALGIA
     Route: 048
  4. ZANAFLEX [Concomitant]
     Indication: MUSCLE SPASMS
     Dosage: 1 EVERY HOUR AS NEEDED
     Route: 048
  5. EFFEXOR XR [Concomitant]
     Indication: DEPRESSION
     Route: 048
  6. VITAMIN D [Concomitant]
     Indication: BONE DISORDER
     Dosage: 50,000 UNITS
     Route: 048
  7. CALCITONIN NASAL SPRAY [Concomitant]
     Indication: BONE DISORDER
     Dosage: DAILY
     Route: 055
  8. CALCIUM WITH VITAMIN D [Concomitant]
     Indication: BONE DISORDER
     Dosage: DAILY
     Route: 048

REACTIONS (1)
  - WRONG TECHNIQUE IN DRUG USAGE PROCESS [None]
